FAERS Safety Report 18245655 (Version 1)
Quarter: 2020Q3

REPORT INFORMATION
  Report Type: Spontaneous
  Country: US (occurrence: US)
  Receive Date: 20200909
  Receipt Date: 20200909
  Transmission Date: 20201103
  Serious: No
  Sender: FDA-Public Use
  Company Number: US-GRANULES INDIA LIMITED-2089526

PATIENT

DRUGS (1)
  1. METFORMIN HYDROCHLORIDE. [Suspect]
     Active Substance: METFORMIN HYDROCHLORIDE
     Indication: PRODUCT USED FOR UNKNOWN INDICATION
     Route: 065

REACTIONS (8)
  - Feeling hot [Unknown]
  - Pruritus [Unknown]
  - Dyspnoea [Unknown]
  - Increased appetite [Unknown]
  - Insomnia [Unknown]
  - Mouth swelling [Unknown]
  - Heart rate increased [Unknown]
  - Product substitution issue [Unknown]
